FAERS Safety Report 18886963 (Version 2)
Quarter: 2021Q1

REPORT INFORMATION
  Report Type: Spontaneous
  Country: NZ (occurrence: NZ)
  Receive Date: 20210212
  Receipt Date: 20210303
  Transmission Date: 20210420
  Serious: Yes (Other)
  Sender: FDA-Public Use
  Company Number: NZ-ASTRAZENECA-2021A043678

PATIENT
  Age: 20857 Day
  Sex: Male
  Weight: 64 kg

DRUGS (4)
  1. IMFINZI [Suspect]
     Active Substance: DURVALUMAB
     Indication: SMALL CELL LUNG CANCER
     Dosage: 1500 MG EVERY 3 WEEKS FOR 4 CYCLES IN COMBINATION WITH ETOPOSIDE AND EITHER CARBOPLATIN OR CISPLA...
     Route: 042
     Dates: start: 20201105, end: 20210127
  2. CISPLATIN. [Concomitant]
     Active Substance: CISPLATIN
  3. ETOPOSIDE. [Concomitant]
     Active Substance: ETOPOSIDE
  4. OMEPRAZOLE. [Concomitant]
     Active Substance: OMEPRAZOLE
     Indication: GASTROOESOPHAGEAL REFLUX DISEASE
     Route: 065
     Dates: start: 2016

REACTIONS (1)
  - Metastases to meninges [Unknown]
